FAERS Safety Report 18035811 (Version 1)
Quarter: 2020Q3

REPORT INFORMATION
  Report Type: Spontaneous
  Country: US (occurrence: US)
  Receive Date: 20200717
  Receipt Date: 20200717
  Transmission Date: 20201103
  Serious: Yes (Other)
  Sender: FDA-Public Use
  Company Number: None

PATIENT
  Age: 84 Year
  Sex: Female
  Weight: 65.4 kg

DRUGS (1)
  1. IOHEXOL 350 [Suspect]
     Active Substance: IOHEXOL
     Indication: DIAGNOSTIC PROCEDURE
     Route: 040
     Dates: start: 20200702, end: 20200702

REACTIONS (4)
  - Blister [None]
  - Rash [None]
  - Burning sensation [None]
  - Malaise [None]

NARRATIVE: CASE EVENT DATE: 20200702
